FAERS Safety Report 7805901-X (Version None)
Quarter: 2011Q4

REPORT INFORMATION
  Report Type: 
  Country: None (occurrence: None)
  Receive Date: 20111011
  Receipt Date: 20090825
  Transmission Date: 20120403
  Serious: No
  Sender: FDA-Public Use
  Company Number: 2009BI027236

PATIENT
  Age: 49 Year
  Sex: Female

DRUGS (2)
  1. COPAXONE [Concomitant]
     Indication: MULTIPLE SCLEROSIS
  2. TYSABRI [Suspect]
     Indication: MULTIPLE SCLEROSIS
     Route: 042
     Dates: start: 20080815, end: 20110622

REACTIONS (17)
  - DEPRESSION [None]
  - MUSCULOSKELETAL STIFFNESS [None]
  - PAIN IN EXTREMITY [None]
  - HYPOAESTHESIA [None]
  - BALANCE DISORDER [None]
  - ALOPECIA [None]
  - GAIT DISTURBANCE [None]
  - MUSCULOSKELETAL PAIN [None]
  - BACK PAIN [None]
  - ASTHENIA [None]
  - MUSCLE SPASMS [None]
  - POSTURE ABNORMAL [None]
  - FEELING HOT [None]
  - MULTIPLE SCLEROSIS [None]
  - MUSCULAR WEAKNESS [None]
  - PAIN [None]
  - VAGINAL INFECTION [None]
